FAERS Safety Report 6025189-2 (Version None)
Quarter: 2008Q4

REPORT INFORMATION
  Report Type: 
  Country: None (occurrence: None)
  Receive Date: 20081229
  Receipt Date: 20081229
  Transmission Date: 20090506
  Serious: No
  Sender: FDA-Public Use
  Company Number: None

PATIENT
  Sex: Male
  Weight: 78.6 kg

DRUGS (1)
  1. CISPLATIN [Suspect]
     Dosage: 205 MG
     Dates: end: 20081103

REACTIONS (2)
  - HAEMATOTOXICITY [None]
  - WHITE BLOOD CELL COUNT DECREASED [None]
